FAERS Safety Report 6877409-X (Version None)
Quarter: 2010Q3

REPORT INFORMATION
  Report Type: 
  Country: None (occurrence: None)
  Receive Date: 20100727
  Receipt Date: 20100126
  Transmission Date: 20110219
  Serious: No
  Sender: FDA-Public Use
  Company Number: US-ABBOTT-10P-163-0623135-00

PATIENT
  Sex: Female
  Weight: 61.29 kg

DRUGS (10)
  1. SYNTHROID [Suspect]
     Indication: HYPOTHYROIDISM
     Route: 048
  2. SYNTHROID [Suspect]
     Route: 048
  3. METOCLOPRAMIDE [Suspect]
     Indication: GASTROOESOPHAGEAL REFLUX DISEASE
  4. GAS-X [Suspect]
     Indication: FLATULENCE
  5. LANSOPRAZOLE [Concomitant]
     Indication: GASTROOESOPHAGEAL REFLUX DISEASE
     Route: 048
  6. DEXTROL LA [Concomitant]
     Indication: URINARY INCONTINENCE
     Route: 048
  7. GABAPENTIN [Concomitant]
     Indication: PRODUCT USED FOR UNKNOWN INDICATION
     Route: 048
  8. AMOXICILLIN [Concomitant]
     Indication: GASTROOESOPHAGEAL REFLUX DISEASE
     Dosage: AS REQUIRED
     Route: 048
  9. ZOLPIDEM [Concomitant]
     Indication: SLEEP DISORDER THERAPY
     Route: 048
  10. AZITHROMYCIN [Concomitant]
     Indication: NASOPHARYNGITIS

REACTIONS (6)
  - ALOPECIA [None]
  - DIARRHOEA [None]
  - FLATULENCE [None]
  - SOMNOLENCE [None]
  - THYROID FUNCTION TEST ABNORMAL [None]
  - VISUAL IMPAIRMENT [None]
